FAERS Safety Report 14926835 (Version 2)
Quarter: 2018Q4

REPORT INFORMATION
  Report Type: Spontaneous
  Country: TR (occurrence: TR)
  Receive Date: 20180523
  Receipt Date: 20181204
  Transmission Date: 20190204
  Serious: Yes (Other)
  Sender: FDA-Public Use
  Company Number: TR-INCYTE CORPORATION-2018IN004720

PATIENT

DRUGS (7)
  1. ESOM [Concomitant]
     Indication: ABDOMINAL PAIN UPPER
     Dosage: 40 MG, QD
     Route: 065
     Dates: start: 20180604
  2. JAKAVI [Suspect]
     Active Substance: RUXOLITINIB
     Indication: MYELOFIBROSIS
     Dosage: 20 MG, BID
     Route: 048
     Dates: start: 20170606
  3. ZANIPRESS [Concomitant]
     Active Substance: ENALAPRIL MALEATE\LERCANIDIPINE HYDROCHLORIDE
     Indication: HYPERTENSION
     Dosage: 1 DF, QD
     Route: 065
     Dates: start: 20180425
  4. METPAMID [Concomitant]
     Active Substance: METOCLOPRAMIDE
     Indication: NAUSEA
     Dosage: UNK UNK, TID
     Route: 065
     Dates: start: 20180604
  5. JAKAVI [Suspect]
     Active Substance: RUXOLITINIB
     Dosage: 20 MG, BID
     Route: 048
     Dates: start: 20171013
  6. JAKAVI [Suspect]
     Active Substance: RUXOLITINIB
     Dosage: 15 MG, BID
     Route: 048
     Dates: start: 20180122
  7. JAKAVI [Suspect]
     Active Substance: RUXOLITINIB
     Dosage: 20 MG, QD
     Route: 048
     Dates: start: 20180706

REACTIONS (7)
  - Lymphadenitis [Unknown]
  - Platelet count decreased [Unknown]
  - General physical health deterioration [Unknown]
  - Tuberculosis [Unknown]
  - White blood cell count decreased [Unknown]
  - Granulomatous lymphadenitis [Unknown]
  - Anaemia [Unknown]

NARRATIVE: CASE EVENT DATE: 20170806
